FAERS Safety Report 13449604 (Version 1)
Quarter: 2017Q2

REPORT INFORMATION
  Report Type: Spontaneous
  Country: US (occurrence: US)
  Receive Date: 20170417
  Receipt Date: 20170417
  Transmission Date: 20170830
  Serious: Yes (Other)
  Sender: FDA-Public Use
  Company Number: US-BAYER-2017-065915

PATIENT

DRUGS (1)
  1. RID LICE KILLING [Suspect]
     Active Substance: PIPERONYL BUTOXIDE\PYRETHRUM EXTRACT
     Dosage: UNK
     Route: 065

REACTIONS (1)
  - Liver injury [Unknown]
